FAERS Safety Report 7815590-6 (Version None)
Quarter: 2011Q4

REPORT INFORMATION
  Report Type: 
  Country: None (occurrence: None)
  Receive Date: 20111014
  Receipt Date: 20111005
  Transmission Date: 20120403
  Serious: Yes (Hospitalization)
  Sender: FDA-Public Use
  Company Number: DE-JNJFOC-20110909792

PATIENT
  Age: 66 Year
  Sex: Male
  Weight: 95 kg

DRUGS (1)
  1. INFLIXIMAB, RECOMBINANT [Suspect]
     Indication: PSORIASIS
     Route: 042
     Dates: start: 20091015

REACTIONS (5)
  - URINARY RETENTION [None]
  - TRANSURETHRAL PROSTATECTOMY [None]
  - BLADDER TAMPONADE [None]
  - POST PROCEDURAL COMPLICATION [None]
  - BLOOD URINE PRESENT [None]
